FAERS Safety Report 25413985 (Version 1)
Quarter: 2025Q2

REPORT INFORMATION
  Report Type: Spontaneous
  Country: NL (occurrence: NL)
  Receive Date: 20250609
  Receipt Date: 20250609
  Transmission Date: 20250716
  Serious: Yes (Other)
  Sender: ELI LILLY AND COMPANY
  Company Number: None

PATIENT
  Age: 92 Year
  Sex: Male
  Weight: 95 kg

DRUGS (2)
  1. INSULIN GLARGINE [Suspect]
     Active Substance: INSULIN GLARGINE
     Indication: Type 2 diabetes mellitus
     Dosage: 24 INTERNATIONAL UNIT, DAILY
     Route: 065
     Dates: start: 20250312, end: 20250428
  2. INSULIN ASPART [Suspect]
     Active Substance: INSULIN ASPART
     Indication: Type 2 diabetes mellitus
     Dosage: 34 INTERNATIONAL UNIT, DAILY
     Route: 065
     Dates: start: 20240919, end: 20250428

REACTIONS (1)
  - Hyperglycaemia [Recovering/Resolving]
